FAERS Safety Report 13519319 (Version 2)
Quarter: 2017Q4

REPORT INFORMATION
  Report Type: Spontaneous
  Country: US (occurrence: US)
  Receive Date: 20170505
  Receipt Date: 20171123
  Transmission Date: 20180320
  Serious: No
  Sender: FDA-Public Use
  Company Number: US-PFIZER INC-2017194600

PATIENT
  Age: 29 Year
  Sex: Female
  Weight: 86 kg

DRUGS (2)
  1. CLINDAMYCIN PHOSPHATE. [Suspect]
     Active Substance: CLINDAMYCIN PHOSPHATE
     Indication: DERMATITIS
     Dosage: 1 %, 1X/DAY ALL OVER FACE
     Route: 061
     Dates: start: 20170430, end: 201704
  2. ZYRTEC [Concomitant]
     Active Substance: CETIRIZINE HYDROCHLORIDE
     Indication: HYPERSENSITIVITY
     Dosage: 10 MG, DAILY
     Dates: start: 20170429

REACTIONS (4)
  - Skin warm [Not Recovered/Not Resolved]
  - Soft tissue inflammation [Not Recovered/Not Resolved]
  - Blepharitis [Not Recovered/Not Resolved]
  - Erythema [Not Recovered/Not Resolved]

NARRATIVE: CASE EVENT DATE: 20170501
